FAERS Safety Report 9437774 (Version 1)
Quarter: 2013Q3

REPORT INFORMATION
  Report Type: Spontaneous
  Country: US (occurrence: US)
  Receive Date: 20130802
  Receipt Date: 20130802
  Transmission Date: 20140515
  Serious: No
  Sender: FDA-Public Use
  Company Number: US-BRISTOL-MYERS SQUIBB COMPANY-17424540

PATIENT
  Age: 72 Year
  Sex: Female

DRUGS (7)
  1. WARFARIN SODIUM [Suspect]
     Dates: start: 201210
  2. BENICAR [Concomitant]
  3. KLOR-CON [Concomitant]
  4. FUROSEMIDE [Concomitant]
  5. OMEPRAZOLE [Concomitant]
  6. PRAVASTATIN SODIUM [Concomitant]
  7. PROMETHAZINE [Concomitant]

REACTIONS (4)
  - Diabetic foot [Unknown]
  - Alopecia [Unknown]
  - Weight decreased [Unknown]
  - Decreased appetite [Unknown]
